FAERS Safety Report 17106955 (Version 4)
Quarter: 2020Q2

REPORT INFORMATION
  Report Type: Spontaneous
  Country: US (occurrence: US)
  Receive Date: 20191203
  Receipt Date: 20200618
  Transmission Date: 20200713
  Serious: No
  Sender: FDA-Public Use
  Company Number: US-PFIZER INC-2019519811

PATIENT
  Age: 76 Year
  Sex: Female

DRUGS (14)
  1. DOCETAXEL. [Suspect]
     Active Substance: DOCETAXEL
     Indication: HER2 POSITIVE BREAST CANCER
     Dosage: 175 MG, SINGLE (TOTAL OF 4 CYCLES)
     Dates: start: 20120405, end: 20120405
  2. TAXOTERE [Suspect]
     Active Substance: DOCETAXEL
     Indication: HER2 POSITIVE BREAST CANCER
     Dosage: 175 MG, SINGLE (TOTAL OF 4 CYCLES)
     Dates: start: 20120405, end: 20120405
  3. ADRIAMYCIN [Concomitant]
     Active Substance: DOXORUBICIN HYDROCHLORIDE
     Indication: CHEMOTHERAPY
     Dosage: UNK
  4. DECADRON [Concomitant]
     Active Substance: DEXAMETHASONE
     Indication: CHEMOTHERAPY
     Dosage: UNK
  5. TAXOTERE [Suspect]
     Active Substance: DOCETAXEL
     Dosage: 175 MG, SINGLE (TOTAL OF 4 CYCLES)
     Dates: start: 20120426, end: 20120426
  6. CYTOXAN [Concomitant]
     Active Substance: CYCLOPHOSPHAMIDE
     Indication: CHEMOTHERAPY
     Dosage: UNK
  7. TAXOTERE [Suspect]
     Active Substance: DOCETAXEL
     Dosage: 170 MG, SINGLE (TOTAL OF 4 CYCLES)
     Dates: start: 20120614, end: 20120614
  8. LETROZOLE. [Concomitant]
     Active Substance: LETROZOLE
     Dosage: UNK
  9. DOCETAXEL. [Suspect]
     Active Substance: DOCETAXEL
     Dosage: 175 MG, SINGLE (TOTAL OF 4 CYCLES)
     Dates: start: 20120517, end: 20120517
  10. DOCETAXEL. [Suspect]
     Active Substance: DOCETAXEL
     Dosage: 170 MG, SINGLE (TOTAL OF 4 CYCLES)
     Dates: start: 20120614, end: 20120614
  11. TAXOTERE [Suspect]
     Active Substance: DOCETAXEL
     Dosage: 175 MG, SINGLE (TOTAL OF 4 CYCLES)
     Dates: start: 20120517, end: 20120517
  12. DOXIL [Concomitant]
     Active Substance: DOXORUBICIN HYDROCHLORIDE
     Indication: CHEMOTHERAPY
     Dosage: UNK
  13. DOCETAXEL. [Suspect]
     Active Substance: DOCETAXEL
     Dosage: 175 MG, SINGLE (TOTAL OF 4 CYCLES)
     Dates: start: 20120426, end: 20120426
  14. NEOSAR [Concomitant]
     Active Substance: CYCLOPHOSPHAMIDE
     Indication: CHEMOTHERAPY
     Dosage: UNK

REACTIONS (4)
  - Hair texture abnormal [Not Recovered/Not Resolved]
  - Hair disorder [Not Recovered/Not Resolved]
  - Hair colour changes [Not Recovered/Not Resolved]
  - Alopecia [Not Recovered/Not Resolved]

NARRATIVE: CASE EVENT DATE: 201212
